FAERS Safety Report 21610790 (Version 1)
Quarter: 2022Q4

REPORT INFORMATION
  Report Type: Spontaneous
  Country: US (occurrence: US)
  Receive Date: 20221117
  Receipt Date: 20221117
  Transmission Date: 20230113
  Serious: Yes (Life-Threatening, Hospitalization)
  Sender: FDA-Public Use
  Company Number: US-MYLANLABS-2022M1129307

PATIENT
  Age: 58 Year
  Sex: Male

DRUGS (2)
  1. FENTANYL [Suspect]
     Active Substance: FENTANYL
     Indication: Product used for unknown indication
     Dosage: UNK
     Route: 042
  2. METHAMPHETAMINE [Suspect]
     Active Substance: METHAMPHETAMINE
     Indication: Product used for unknown indication
     Dosage: UNK
     Route: 042

REACTIONS (11)
  - Staphylococcal bacteraemia [Recovering/Resolving]
  - Waterhouse-Friderichsen syndrome [Unknown]
  - Fall [Unknown]
  - Adrenal haemorrhage [Unknown]
  - Encephalopathy [Unknown]
  - Acute respiratory failure [Recovering/Resolving]
  - Spinal cord injury [Unknown]
  - Neurogenic shock [Unknown]
  - Septic shock [Recovered/Resolved]
  - Hypotension [Recovered/Resolved]
  - Drug abuser [Unknown]
